FAERS Safety Report 5960937-9 (Version None)
Quarter: 2008Q4

REPORT INFORMATION
  Report Type: 
  Country: None (occurrence: None)
  Receive Date: 20081119
  Receipt Date: 20081105
  Transmission Date: 20090506
  Serious: Yes (Life-Threatening)
  Sender: FDA-Public Use
  Company Number: 08-058

PATIENT
  Age: 84 Year
  Sex: Male

DRUGS (2)
  1. CEFTRIAXONE [Suspect]
     Indication: PNEUMONIA
     Dosage: 2 G/4 HR, IV
     Route: 042
  2. CEFTRIAXONE [Suspect]
     Indication: SEPSIS
     Dosage: 2 G/4 HR, IV
     Route: 042

REACTIONS (2)
  - ATRIAL FIBRILLATION [None]
  - TOXIC EPIDERMAL NECROLYSIS [None]
